FAERS Safety Report 23684991 (Version 1)
Quarter: 2024Q1

REPORT INFORMATION
  Report Type: Report from Study
  Country: US (occurrence: US)
  Receive Date: 20240328
  Receipt Date: 20240328
  Transmission Date: 20240409
  Serious: Yes (Hospitalization, Other)
  Sender: FDA-Public Use
  Company Number: US-ABBVIE-5691696

PATIENT
  Sex: Male

DRUGS (1)
  1. IMBRUVICA [Suspect]
     Active Substance: IBRUTINIB
     Indication: Chronic lymphocytic leukaemia
     Route: 048
     Dates: start: 20200201

REACTIONS (11)
  - Hypertension [Recovering/Resolving]
  - Weight increased [Unknown]
  - Tremor [Unknown]
  - Kidney enlargement [Unknown]
  - Urinary tract infection [Unknown]
  - Spinal stenosis [Unknown]
  - Swelling [Unknown]
  - Gastrointestinal motility disorder [Unknown]
  - Constipation [Unknown]
  - Spinal pain [Unknown]
  - Back injury [Unknown]

NARRATIVE: CASE EVENT DATE: 20240101
